FAERS Safety Report 14650021 (Version 2)
Quarter: 2018Q1

REPORT INFORMATION
  Report Type: Report from Study
  Country: US (occurrence: US)
  Receive Date: 20180316
  Receipt Date: 20180323
  Transmission Date: 20180509
  Serious: Yes (Other)
  Sender: FDA-Public Use
  Company Number: US-PFIZER INC-2018110799

PATIENT
  Age: 55 Year
  Sex: Male

DRUGS (4)
  1. TACROLIMUS. [Interacting]
     Active Substance: TACROLIMUS
     Dosage: UNK
     Route: 065
  2. SULFAMETHOXAZOLE, TRIMETHOPRIM, BROMHEXINE HY (BROMHEXINE\CLORPRENALINE\SULFAMETHOXAZOLE\TRIMETHOPRIM) [Suspect]
     Active Substance: BROMHEXINE\CLORPRENALINE\SULFAMETHOXAZOLE\TRIMETHOPRIM
     Dosage: UNK
     Route: 065
  3. ONDANSETRON [Suspect]
     Active Substance: ONDANSETRON
     Dosage: 4 MG, SINGLE
     Route: 042
  4. AMIODARONE HCL [Interacting]
     Active Substance: AMIODARONE HYDROCHLORIDE
     Dosage: UNK
     Route: 065

REACTIONS (3)
  - Drug interaction [Unknown]
  - Electrocardiogram QT prolonged [Unknown]
  - Nausea [None]
